FAERS Safety Report 10426585 (Version 2)
Quarter: 2014Q3

REPORT INFORMATION
  Report Type: Spontaneous
  Country: US (occurrence: US)
  Receive Date: 20140903
  Receipt Date: 20140915
  Transmission Date: 20150326
  Serious: Yes (Disabling, Other)
  Sender: FDA-Public Use
  Company Number: US-PAR PHARMACEUTICAL, INC-2014SCPR009355

PATIENT

DRUGS (2)
  1. BUPROPION HCL XL TABLETS [Suspect]
     Active Substance: BUPROPION HYDROCHLORIDE
     Dosage: 300 MG, OD, TWO 150 MG TABLETS ONCE A DAY
     Route: 048
     Dates: start: 201408
  2. BUPROPION HCL XL TABLETS [Suspect]
     Active Substance: BUPROPION HYDROCHLORIDE
     Indication: DEPRESSION
     Dosage: 300 MG, OD
     Route: 048
     Dates: start: 20140718, end: 201408

REACTIONS (16)
  - Impaired work ability [Unknown]
  - Panic attack [Recovered/Resolved]
  - Depression [Recovered/Resolved]
  - Anxiety [Recovered/Resolved]
  - Feeling abnormal [Recovered/Resolved]
  - Product quality issue [Unknown]
  - Abdominal discomfort [Recovered/Resolved]
  - Palpitations [Recovered/Resolved]
  - Quality of life decreased [Unknown]
  - Mood altered [Recovered/Resolved]
  - Decreased appetite [Recovered/Resolved]
  - Condition aggravated [Recovered/Resolved]
  - Migraine [Recovered/Resolved]
  - Dizziness [Recovered/Resolved]
  - Disturbance in attention [Recovered/Resolved]
  - Affect lability [Recovered/Resolved]

NARRATIVE: CASE EVENT DATE: 201407
